FAERS Safety Report 8140999-3 (Version None)
Quarter: 2012Q1

REPORT INFORMATION
  Report Type: 
  Country: None (occurrence: None)
  Receive Date: 20120216
  Receipt Date: 20120207
  Transmission Date: 20120608
  Serious: Yes (Hospitalization)
  Sender: FDA-Public Use
  Company Number: US-AMGEN-USASP2012008275

PATIENT
  Age: 79 Year
  Sex: Female

DRUGS (1)
  1. ENBREL [Suspect]
     Indication: PSORIASIS
     Dosage: 50 MG, 2 TIMES/WK
     Dates: start: 20111031, end: 20120123

REACTIONS (5)
  - BLOOD IRON DECREASED [None]
  - MALNUTRITION [None]
  - PNEUMONIA [None]
  - DEHYDRATION [None]
  - URINARY TRACT INFECTION [None]
